FAERS Safety Report 17545896 (Version 6)
Quarter: 2022Q2

REPORT INFORMATION
  Report Type: Report from Study
  Country: None (occurrence: US)
  Receive Date: 20200316
  Receipt Date: 20220412
  Transmission Date: 20220721
  Serious: Yes (Death, Hospitalization)
  Sender: FDA-Public Use
  Company Number: US-AKCEA THERAPEUTICS-2020IS001117

PATIENT
  Age: 75 Year
  Sex: Male
  Weight: 95.5 kg

DRUGS (2)
  1. TEGSEDI [Suspect]
     Active Substance: INOTERSEN SODIUM
     Indication: Hereditary neuropathic amyloidosis
     Route: 058
     Dates: end: 20200511
  2. DEVICE [Suspect]
     Active Substance: DEVICE

REACTIONS (4)
  - Death [Fatal]
  - Hospitalisation [Not Recovered/Not Resolved]
  - Hypotension [Unknown]
  - Therapy cessation [Unknown]

NARRATIVE: CASE EVENT DATE: 20200308
